FAERS Safety Report 22314098 (Version 1)
Quarter: 2023Q2

REPORT INFORMATION
  Report Type: Spontaneous
  Country: US (occurrence: US)
  Receive Date: 20230512
  Receipt Date: 20230512
  Transmission Date: 20230722
  Serious: Yes (Death, Other)
  Sender: FDA-Public Use
  Company Number: US-BRISTOL-MYERS SQUIBB COMPANY-2023-067604

PATIENT
  Age: 26 Year
  Sex: Male

DRUGS (4)
  1. OPDIVO [Suspect]
     Active Substance: NIVOLUMAB
     Indication: Testis cancer
     Dosage: DOSE : OPDIVO: 194MG ; YERVOY 65MG;     FREQ : EVERY 3 WEEKS,VIALS,ROUTE OF ADMINISTRATION SOLUTION
  2. YERVOY [Suspect]
     Active Substance: IPILIMUMAB
     Indication: Testis cancer
     Dosage: FREQ : EVERY 3 WEEKS,VIALS,ROUTE OF ADMINISTRATION SOLUTION FOR INFUSION
  3. ONDANSETRON [Concomitant]
     Active Substance: ONDANSETRON
     Indication: Product used for unknown indication
  4. ETOPOSIDE [Concomitant]
     Active Substance: ETOPOSIDE
     Indication: Product used for unknown indication

REACTIONS (2)
  - Death [Fatal]
  - Off label use [Unknown]
